FAERS Safety Report 9375643 (Version 2)
Quarter: 2013Q3

REPORT INFORMATION
  Report Type: Spontaneous
  Country: US (occurrence: US)
  Receive Date: 20130628
  Receipt Date: 20130729
  Transmission Date: 20140515
  Serious: Yes (Death)
  Sender: FDA-Public Use
  Company Number: US-PFIZER INC-2013192894

PATIENT
  Age: 67 Year
  Sex: Male

DRUGS (3)
  1. REVATIO [Suspect]
     Indication: PULMONARY HYPERTENSION
     Dosage: 20 MG, 3X/DAY
     Route: 048
  2. REVATIO [Suspect]
     Indication: CARDIAC FAILURE CONGESTIVE
  3. DIGOXIN [Concomitant]
     Dosage: UNK

REACTIONS (1)
  - Cardiac failure congestive [Fatal]
